FAERS Safety Report 20884482 (Version 1)
Quarter: 2022Q2

REPORT INFORMATION
  Report Type: Spontaneous
  Country: US (occurrence: US)
  Receive Date: 20220527
  Receipt Date: 20220527
  Transmission Date: 20220721
  Serious: Yes (Hospitalization)
  Sender: FDA-Public Use
  Company Number: US-TEVA-2022-US-2040776

PATIENT
  Age: 76 Year
  Sex: Male

DRUGS (4)
  1. SOTALOL [Suspect]
     Active Substance: SOTALOL
     Indication: Atrial fibrillation
     Route: 065
  2. SOTALOL [Suspect]
     Active Substance: SOTALOL
     Dosage: 240 MILLIGRAM DAILY;
     Route: 065
  3. DOFETILIDE [Suspect]
     Active Substance: DOFETILIDE
     Dosage: 500 MICROGRAM DAILY;
     Route: 048
  4. DOFETILIDE [Suspect]
     Active Substance: DOFETILIDE
     Dosage: 250 MICROGRAM DAILY;
     Route: 048

REACTIONS (4)
  - Drug ineffective [Unknown]
  - Cardiac ablation [Unknown]
  - Malaise [Unknown]
  - Fall [Unknown]

NARRATIVE: CASE EVENT DATE: 20220101
